FAERS Safety Report 6318235-X (Version None)
Quarter: 2009Q3

REPORT INFORMATION
  Report Type: 
  Country: None (occurrence: None)
  Receive Date: 20090821
  Receipt Date: 20090818
  Transmission Date: 20100115
  Serious: No
  Sender: FDA-Public Use
  Company Number: US-B.I. PHARMACEUTICALS,INC./RIDGEFIELD-2009-BP-09782BP

PATIENT
  Age: 71 Year
  Sex: Female

DRUGS (8)
  1. DULCOLAX [Suspect]
     Indication: CONSTIPATION
     Route: 054
     Dates: start: 20090816, end: 20090818
  2. COMBIVENT [Suspect]
     Indication: CHRONIC OBSTRUCTIVE PULMONARY DISEASE
  3. COUMADIN [Concomitant]
     Indication: CEREBROVASCULAR ACCIDENT
  4. COUMADIN [Concomitant]
     Indication: CAROTID ARTERY OCCLUSION
  5. RYTHMOL [Concomitant]
     Indication: ATRIAL FIBRILLATION
  6. ACTONEL [Concomitant]
     Indication: BONE DISORDER
  7. CLARITIN [Concomitant]
     Indication: HYPERSENSITIVITY
  8. ADVAIR HFA [Concomitant]
     Indication: CHRONIC OBSTRUCTIVE PULMONARY DISEASE

REACTIONS (2)
  - DRUG INEFFECTIVE [None]
  - GASTROINTESTINAL MOTILITY DISORDER [None]
